FAERS Safety Report 15553819 (Version 2)
Quarter: 2018Q4

REPORT INFORMATION
  Report Type: Spontaneous
  Country: US (occurrence: US)
  Receive Date: 20181026
  Receipt Date: 20181129
  Transmission Date: 20190205
  Serious: No
  Sender: FDA-Public Use
  Company Number: US-SA-2018SA293933

PATIENT
  Sex: Female

DRUGS (1)
  1. PRALUENT [Suspect]
     Active Substance: ALIROCUMAB
     Indication: TYPE IIA HYPERLIPIDAEMIA
     Dosage: UNK UNK, QOW
     Route: 058

REACTIONS (5)
  - Fall [Unknown]
  - Muscle spasms [Unknown]
  - Arthralgia [Unknown]
  - Joint stiffness [Unknown]
  - Ankle fracture [Unknown]
